FAERS Safety Report 13730212 (Version 2)
Quarter: 2017Q3

REPORT INFORMATION
  Report Type: Spontaneous
  Country: US (occurrence: US)
  Receive Date: 20170707
  Receipt Date: 20170717
  Transmission Date: 20171127
  Serious: Yes (Other)
  Sender: FDA-Public Use
  Company Number: US-JNJFOC-20170524587

PATIENT
  Age: 66 Year
  Sex: Male
  Weight: 103.51 kg

DRUGS (3)
  1. XARELTO [Suspect]
     Active Substance: RIVAROXABAN
     Indication: ATRIAL FIBRILLATION
     Dosage: 20MG, 10 MG
     Route: 048
     Dates: start: 20150225
  2. XARELTO [Suspect]
     Active Substance: RIVAROXABAN
     Indication: THROMBOSIS PROPHYLAXIS
     Dosage: 20MG, 10 MG
     Route: 048
     Dates: start: 20150225
  3. XARELTO [Suspect]
     Active Substance: RIVAROXABAN
     Indication: CEREBROVASCULAR ACCIDENT PROPHYLAXIS
     Dosage: 20MG, 10 MG
     Route: 048
     Dates: start: 20150225

REACTIONS (4)
  - Muscle haemorrhage [Unknown]
  - Limb injury [Unknown]
  - Contusion [Unknown]
  - Ecchymosis [Unknown]

NARRATIVE: CASE EVENT DATE: 201505
